FAERS Safety Report 4580505-3 (Version None)
Quarter: 2005Q1

REPORT INFORMATION
  Report Type: 
  Country: None (occurrence: None)
  Receive Date: 20050127
  Receipt Date: 20041130
  Transmission Date: 20050727
  Serious: No
  Sender: FDA-Public Use
  Company Number: USA040875607

PATIENT
  Age: 7 Year
  Sex: Female
  Weight: 21 kg

DRUGS (3)
  1. STRATTERA [Suspect]
     Indication: IMPULSIVE BEHAVIOUR
     Dosage: 18 MG DAY
     Dates: start: 20030101, end: 20040901
  2. VITAMIN NOS [Concomitant]
  3. DIGESTIVE ENZYMES WITH ACIDOPHILUS [Concomitant]

REACTIONS (6)
  - AGGRESSION [None]
  - ANGER [None]
  - DECREASED APPETITE [None]
  - DRUG INEFFECTIVE [None]
  - IRRITABILITY [None]
  - SOMNOLENCE [None]
